FAERS Safety Report 5010446-9 (Version None)
Quarter: 2006Q2

REPORT INFORMATION
  Report Type: 
  Country: None (occurrence: None)
  Receive Date: 20060525
  Receipt Date: 20050909
  Transmission Date: 20061013
  Serious: Yes (Hospitalization)
  Sender: FDA-Public Use
  Company Number: PHHO2005US14386

PATIENT
  Age: 29 Year
  Sex: Female
  Weight: 61.2 kg

DRUGS (3)
  1. DESFERAL [Suspect]
     Indication: BLOOD IRON INCREASED
     Dosage: 2200 MG, QD
     Route: 058
     Dates: start: 20050902, end: 20050907
  2. DESFERAL [Suspect]
     Dosage: NO TREATMENT
  3. DESFERAL [Suspect]
     Dosage: 2200 MG DAILY
     Route: 058
     Dates: end: 20051022

REACTIONS (11)
  - CELLULITIS [None]
  - CONSTIPATION [None]
  - DIARRHOEA [None]
  - INJECTION SITE ERYTHEMA [None]
  - INJECTION SITE PAIN [None]
  - INJECTION SITE WARMTH [None]
  - MENTAL STATUS CHANGES [None]
  - OXYGEN SATURATION DECREASED [None]
  - PNEUMONIA ASPIRATION [None]
  - PYREXIA [None]
  - SICKLE CELL ANAEMIA WITH CRISIS [None]
